FAERS Safety Report 6060372-1 (Version None)
Quarter: 2009Q1

REPORT INFORMATION
  Report Type: 
  Country: None (occurrence: None)
  Receive Date: 20090126
  Receipt Date: 20090126
  Transmission Date: 20090719
  Serious: No
  Sender: FDA-Public Use
  Company Number: None

PATIENT
  Age: 30 Year
  Sex: Female

DRUGS (4)
  1. PYLERA [Suspect]
     Indication: HELICOBACTER INFECTION
     Dosage: 3 CAPSULES QID
     Dates: start: 20081015
  2. ZEGERID (SODIUM BICARBONATE AND OMEPRAZOLE) [Concomitant]
  3. ACIPHEX 9 (RABEPRAZOLE SODIUM) [Concomitant]
  4. HYDROXIZINE [Concomitant]

REACTIONS (2)
  - FEELING JITTERY [None]
  - NAUSEA [None]
